FAERS Safety Report 10416244 (Version 1)
Quarter: 2014Q3

REPORT INFORMATION
  Report Type: Spontaneous
  Country: US (occurrence: None)
  Receive Date: 20140827
  Receipt Date: 20140827
  Transmission Date: 20150326
  Serious: No
  Sender: FDA-Public Use
  Company Number: None

PATIENT
  Age: 46 Year
  Sex: Female
  Weight: 72.58 kg

DRUGS (1)
  1. BUTALBITAL, ACETAMINOPHEN, CAFFEINE + CODEINE [Suspect]
     Active Substance: ACETAMINOPHEN\BUTALBITAL\CAFFEINE\CODEINE PHOSPHATE
     Indication: MIGRAINE
     Dosage: 1-2 PILLS AS NEEDED TAKEN BY MOUTH
     Route: 048
     Dates: start: 20130304, end: 20140310

REACTIONS (3)
  - Product substitution issue [None]
  - Product taste abnormal [None]
  - Drug ineffective [None]

NARRATIVE: CASE EVENT DATE: 20140826
